FAERS Safety Report 16162835 (Version 1)
Quarter: 2019Q2

REPORT INFORMATION
  Report Type: Spontaneous
  Country: US (occurrence: US)
  Receive Date: 20190302
  Receipt Date: 20190302
  Transmission Date: 20190711
  Serious: Yes (Hospitalization)
  Sender: FDA-Public Use
  Company Number: None

PATIENT
  Age: 62 Year
  Sex: Female
  Weight: 69 kg

DRUGS (2)
  1. CISPLATIN. [Suspect]
     Active Substance: CISPLATIN
     Dates: end: 20181029
  2. ETOPOSIDE (VP-16) [Suspect]
     Active Substance: ETOPOSIDE
     Dates: end: 20181029

REACTIONS (6)
  - Pneumonia bacterial [None]
  - Cough [None]
  - Pneumonia [None]
  - Chest X-ray abnormal [None]
  - Pyrexia [None]
  - Pneumonitis [None]

NARRATIVE: CASE EVENT DATE: 20190210
